FAERS Safety Report 6867555-9 (Version None)
Quarter: 2010Q3

REPORT INFORMATION
  Report Type: 
  Country: None (occurrence: None)
  Receive Date: 20100722
  Receipt Date: 20100709
  Transmission Date: 20110219
  Serious: Yes (Other)
  Sender: FDA-Public Use
  Company Number: CA-BAYER-201025739NA

PATIENT
  Sex: Female
  Weight: 130 kg

DRUGS (2)
  1. AVELOX [Suspect]
     Indication: TOOTH ABSCESS
     Dosage: TOTAL DAILY DOSE: 400 MG  UNIT DOSE: 400 MG
     Route: 048
     Dates: start: 20100204, end: 20100206
  2. CITALOPRAM HYDROBROMIDE [Concomitant]

REACTIONS (3)
  - CORNEAL OPACITY [None]
  - VISION BLURRED [None]
  - VISUAL IMPAIRMENT [None]
